FAERS Safety Report 8592341-1 (Version None)
Quarter: 2012Q3

REPORT INFORMATION
  Report Type: 
  Country: None (occurrence: None)
  Receive Date: 20120814
  Receipt Date: 20120808
  Transmission Date: 20120928
  Serious: Yes (Hospitalization)
  Sender: FDA-Public Use
  Company Number: US-PFIZER INC-2009201175

PATIENT
  Age: 70 Year
  Sex: Female
  Weight: 90.703 kg

DRUGS (8)
  1. CALAN SR [Suspect]
     Indication: ATRIAL TACHYCARDIA
     Dosage: 240 MG, DAILY
  2. CALAN SR [Suspect]
     Indication: SUPRAVENTRICULAR TACHYCARDIA
  3. ACETYLSALICYLIC ACID [Concomitant]
     Dosage: UNK
  4. DOXYCYCLINE CALCIUM [Suspect]
     Indication: RASH
     Dosage: 750 MG, 2X/DAY
  5. VERAPAMIL HCL [Suspect]
     Indication: ANGINA PECTORIS
     Dosage: UNK
  6. GLUCOTROL XL [Suspect]
     Indication: TYPE 2 DIABETES MELLITUS
     Dosage: 5 MG, 1X/DAY
     Route: 048
  7. GLIPIZIDE [Suspect]
     Indication: TYPE 2 DIABETES MELLITUS
     Dosage: UNK
     Dates: start: 20081201
  8. BENADRYL [Concomitant]
     Dosage: UNK

REACTIONS (12)
  - UPPER RESPIRATORY TRACT INFECTION [None]
  - HEART RATE DECREASED [None]
  - HYPERSENSITIVITY [None]
  - EAR INFECTION [None]
  - HEART RATE IRREGULAR [None]
  - MIGRAINE [None]
  - EAR DISCOMFORT [None]
  - TINNITUS [None]
  - DIZZINESS [None]
  - HEART RATE INCREASED [None]
  - VOMITING [None]
  - BLOOD PRESSURE INCREASED [None]
